FAERS Safety Report 16397914 (Version 2)
Quarter: 2019Q2

REPORT INFORMATION
  Report Type: Report from Study
  Country: US (occurrence: US)
  Receive Date: 20190606
  Receipt Date: 20190606
  Transmission Date: 20190711
  Serious: Yes (Hospitalization)
  Sender: FDA-Public Use
  Company Number: US-BRISTOL-MYERS SQUIBB COMPANY-BMS-2019-054077

PATIENT
  Sex: Male
  Weight: 37.9 kg

DRUGS (2)
  1. CISPLATIN. [Suspect]
     Active Substance: CISPLATIN
     Indication: NASOPHARYNGEAL CANCER
     Dosage: UNK
     Route: 042
     Dates: start: 20190409
  2. NIVOLUMAB [Suspect]
     Active Substance: NIVOLUMAB
     Indication: NASOPHARYNGEAL CANCER
     Dosage: UNK
     Route: 042
     Dates: start: 20190326

REACTIONS (2)
  - Hiatus hernia [Unknown]
  - Cholelithiasis [Unknown]
